FAERS Safety Report 6147195-X (Version None)
Quarter: 2009Q2

REPORT INFORMATION
  Report Type: 
  Country: None (occurrence: None)
  Receive Date: 20090407
  Receipt Date: 20080918
  Transmission Date: 20091009
  Serious: No
  Sender: FDA-Public Use
  Company Number: US-TYCO HEALTHCARE/MALLINCKRODT-T200801526

PATIENT

DRUGS (19)
  1. METHADOSE [Suspect]
     Dosage: 5 MG, TID
     Route: 048
     Dates: start: 20030325
  2. LORTAB [Suspect]
     Indication: PAIN
     Dosage: 7.5/500 MG, UNK
     Dates: start: 19991013, end: 20010503
  3. LORTAB [Suspect]
     Dosage: 10/500 MG, QID
     Route: 048
     Dates: start: 20010901, end: 20020701
  4. LORTAB [Suspect]
     Dosage: 10/500 MG ONE TO SIX TABS DAILY
     Dates: start: 20030101
  5. ACTIQ [Suspect]
     Indication: MUSCULOSKELETAL CHEST PAIN
     Dosage: 200 UG, 6 TO 24 LOZENGES PER MONTH, PRN
     Route: 002
     Dates: start: 20010601, end: 20020801
  6. ACTIQ [Suspect]
     Dosage: 200 UG, BID
     Route: 002
     Dates: start: 20030310, end: 20030728
  7. ACTIQ [Suspect]
     Dosage: 200 UG, 3 TO 4 LOZENGES DAILY, PRN
     Route: 002
     Dates: start: 20030729, end: 20031101
  8. OXYCONTIN [Suspect]
     Indication: PAIN
     Dosage: 40 MG, BID
     Route: 048
     Dates: start: 20010601, end: 20010628
  9. OXYCONTIN [Suspect]
     Dosage: 40 MG, QHS
     Route: 048
     Dates: start: 20010629
  10. PERCOCET [Concomitant]
     Dates: start: 20010504, end: 20010701
  11. DURAGESIC-100 [Concomitant]
     Dates: start: 20020131, end: 20021001
  12. GABITRIL [Concomitant]
     Dates: start: 20010705, end: 20010711
  13. GABITRIL [Concomitant]
     Dates: start: 20010712, end: 20010718
  14. GABITRIL [Concomitant]
     Dates: start: 20010719
  15. GABITRIL [Concomitant]
     Dates: end: 20030101
  16. VIOXX [Concomitant]
     Dates: start: 20000727, end: 20030401
  17. VIOXX [Concomitant]
     Dates: start: 20030402
  18. ZANAFLEX [Concomitant]
     Dates: start: 20011228, end: 20020130
  19. ZANAFLEX [Concomitant]
     Dates: start: 20020131, end: 20030101

REACTIONS (5)
  - DENTAL CARIES [None]
  - INTESTINAL FUNCTIONAL DISORDER [None]
  - TOOTH ABSCESS [None]
  - TOOTH FRACTURE [None]
  - TOOTHACHE [None]
